FAERS Safety Report 19644056 (Version 6)
Quarter: 2022Q1

REPORT INFORMATION
  Report Type: Report from Study
  Country: US (occurrence: US)
  Receive Date: 20210731
  Receipt Date: 20220122
  Transmission Date: 20220423
  Serious: No
  Sender: FDA-Public Use
  Company Number: NVSC2021US160296

PATIENT
  Sex: Female

DRUGS (2)
  1. ENTRESTO [Suspect]
     Active Substance: SACUBITRIL\VALSARTAN
     Indication: Cardiac failure chronic
     Dosage: 50 MG, BID (24/26 MG)
     Route: 048
     Dates: start: 20210604
  2. ENTRESTO [Suspect]
     Active Substance: SACUBITRIL\VALSARTAN
     Dosage: TAKES 1 TAB EVERY AM, 2 TABS EVERY PM
     Route: 065

REACTIONS (5)
  - Arthralgia [Recovering/Resolving]
  - Memory impairment [Unknown]
  - Malaise [Recovered/Resolved]
  - Mental disorder [Unknown]
  - Product dose omission issue [Recovered/Resolved]
